FAERS Safety Report 6382388-8 (Version None)
Quarter: 2009Q3

REPORT INFORMATION
  Report Type: 
  Country: None (occurrence: None)
  Receive Date: 20090930
  Receipt Date: 20090917
  Transmission Date: 20100115
  Serious: Yes (Death, Other)
  Sender: FDA-Public Use
  Company Number: NO-PFIZER INC-2009262888

PATIENT
  Age: 48 Year

DRUGS (1)
  1. CYKLOKAPRON [Suspect]
     Indication: MENORRHAGIA
     Dosage: 500 MG, UNK
     Route: 048
     Dates: start: 20081231, end: 20090101

REACTIONS (2)
  - DEATH [None]
  - PULMONARY EMBOLISM [None]
